FAERS Safety Report 9421056 (Version 1)
Quarter: 2013Q3

REPORT INFORMATION
  Report Type: Report from Study
  Country: US (occurrence: US)
  Receive Date: 20130725
  Receipt Date: 20130725
  Transmission Date: 20140515
  Serious: Yes (Other)
  Sender: FDA-Public Use
  Company Number: US-MYLANLABS-2013S1016502

PATIENT
  Sex: Male

DRUGS (2)
  1. AMNESTEEM CAPSULES [Suspect]
  2. CLARUS [Suspect]

REACTIONS (3)
  - Road traffic accident [Recovered/Resolved]
  - Hand fracture [Not Recovered/Not Resolved]
  - Excoriation [Not Recovered/Not Resolved]
